FAERS Safety Report 22116275 (Version 2)
Quarter: 2023Q1

REPORT INFORMATION
  Report Type: Spontaneous
  Country: US (occurrence: US)
  Receive Date: 20230320
  Receipt Date: 20230324
  Transmission Date: 20230417
  Serious: Yes (Other)
  Sender: FDA-Public Use
  Company Number: US-TORRENT-00012576

PATIENT
  Age: 75 Year
  Sex: Female

DRUGS (2)
  1. DULOXETINE [Interacting]
     Active Substance: DULOXETINE
     Indication: Product used for unknown indication
     Dosage: UNKNOWN
     Route: 065
  2. FLECAINIDE [Interacting]
     Active Substance: FLECAINIDE
     Indication: Atrial fibrillation
     Dosage: 150 MG DAILY
     Route: 065

REACTIONS (8)
  - Syncope [Unknown]
  - Dizziness [Unknown]
  - Drug interaction [Unknown]
  - Atrial fibrillation [Unknown]
  - Malaise [Unknown]
  - Ventricular tachycardia [Recovered/Resolved]
  - Drug interaction [Unknown]
  - Drug level increased [Unknown]
